FAERS Safety Report 7439629-5 (Version None)
Quarter: 2011Q2

REPORT INFORMATION
  Report Type: 
  Country: None (occurrence: None)
  Receive Date: 20110427
  Receipt Date: 20110422
  Transmission Date: 20111010
  Serious: Yes (Death, Other)
  Sender: FDA-Public Use
  Company Number: FR-PFIZER INC-2011087659

PATIENT
  Age: 76 Year
  Sex: Male

DRUGS (2)
  1. TORISEL [Suspect]
     Indication: MANTLE CELL LYMPHOMA
     Dosage: 175 MG, SINGLE X 3
  2. TORISEL [Suspect]
     Dosage: 75 MG, UNK

REACTIONS (5)
  - DIABETES MELLITUS [None]
  - ANGIOPATHY [None]
  - DIABETIC FOOT [None]
  - MANTLE CELL LYMPHOMA [None]
  - DISEASE PROGRESSION [None]
